FAERS Safety Report 6122794-X (Version None)
Quarter: 2009Q1

REPORT INFORMATION
  Report Type: 
  Country: None (occurrence: None)
  Receive Date: 20090318
  Receipt Date: 20081013
  Transmission Date: 20090719
  Serious: No
  Sender: FDA-Public Use
  Company Number: US-AMGEN-KDL313080

PATIENT
  Sex: Female

DRUGS (5)
  1. NEULASTA [Suspect]
     Indication: CHEMOTHERAPY
  2. RITUXAN [Concomitant]
  3. CYTOXAN [Concomitant]
  4. VINCRISTINE [Concomitant]
  5. PREDNISONE [Concomitant]

REACTIONS (15)
  - ABDOMINAL PAIN [None]
  - BONE PAIN [None]
  - DYSGEUSIA [None]
  - EATING DISORDER [None]
  - FEAR [None]
  - HEADACHE [None]
  - HEART RATE INCREASED [None]
  - HYPERHIDROSIS [None]
  - HYPOAESTHESIA [None]
  - MALAISE [None]
  - NAUSEA [None]
  - PYREXIA [None]
  - RHINORRHOEA [None]
  - TENDERNESS [None]
  - VOMITING [None]
